FAERS Safety Report 10211477 (Version 2)
Quarter: 2014Q3

REPORT INFORMATION
  Report Type: Spontaneous
  Country: JP (occurrence: JP)
  Receive Date: 20140602
  Receipt Date: 20140819
  Transmission Date: 20150326
  Serious: Yes (Other)
  Sender: FDA-Public Use
  Company Number: JP-PFIZER INC-2014150105

PATIENT
  Age: 89 Year
  Sex: Female

DRUGS (2)
  1. CELECOX [Suspect]
     Active Substance: CELECOXIB
     Indication: CONTUSION
     Dosage: 400 MG, 1X/DAY
     Route: 048
     Dates: start: 20140513, end: 20140526
  2. MAGLAX [Concomitant]
     Active Substance: MAGNESIUM OXIDE
     Dosage: 250 MG, UNK
     Route: 048
     Dates: start: 20140513

REACTIONS (1)
  - Delirium [Recovered/Resolved]

NARRATIVE: CASE EVENT DATE: 20140515
